FAERS Safety Report 25747658 (Version 1)
Quarter: 2025Q3

REPORT INFORMATION
  Report Type: Spontaneous
  Country: CA (occurrence: CA)
  Receive Date: 20250901
  Receipt Date: 20250901
  Transmission Date: 20251021
  Serious: Yes (Other)
  Sender: ALEXION PHARMACEUTICALS
  Company Number: CA-ASTRAZENECA-202508CAN022909CA

PATIENT
  Age: 88 Year
  Sex: Female

DRUGS (6)
  1. DAPAGLIFLOZIN [Suspect]
     Active Substance: DAPAGLIFLOZIN
     Dosage: 5 MILLIGRAM, QD
     Route: 065
  2. RUXIENCE [Suspect]
     Active Substance: RITUXIMAB-PVVR
     Indication: Glomerulonephritis
  3. RUXIENCE [Suspect]
     Active Substance: RITUXIMAB-PVVR
  4. ACETAMINOPHEN [Concomitant]
     Active Substance: ACETAMINOPHEN
  5. DIPHENHYDRAMINE [Concomitant]
     Active Substance: DIPHENHYDRAMINE
  6. METHYLPREDNISOLONE [Concomitant]
     Active Substance: METHYLPREDNISOLONE

REACTIONS (3)
  - Blood pressure systolic increased [Unknown]
  - Dehydration [Unknown]
  - Weight decreased [Unknown]
